FAERS Safety Report 7679285-4 (Version None)
Quarter: 2011Q3

REPORT INFORMATION
  Report Type: 
  Country: None (occurrence: None)
  Receive Date: 20110812
  Receipt Date: 20101023
  Transmission Date: 20111222
  Serious: No
  Sender: FDA-Public Use
  Company Number: US-BAYER-201040453NA

PATIENT
  Age: 60 Year
  Sex: Female

DRUGS (2)
  1. MIRENA [Suspect]
     Indication: MENORRHAGIA
     Dosage: 20 ?G/D, CONT
     Route: 015
     Dates: start: 20100301
  2. ANTIBIOTICS [Concomitant]
     Indication: SINUSITIS
     Dosage: UNK
     Dates: start: 20100916

REACTIONS (8)
  - PYREXIA [None]
  - MALAISE [None]
  - WEIGHT DECREASED [None]
  - DEVICE EXPULSION [None]
  - PANIC ATTACK [None]
  - ABDOMINAL PAIN [None]
  - MENORRHAGIA [None]
  - BILIARY COLIC [None]
